FAERS Safety Report 17272983 (Version 2)
Quarter: 2020Q1

REPORT INFORMATION
  Report Type: Spontaneous
  Country: US (occurrence: US)
  Receive Date: 20200115
  Receipt Date: 20200220
  Transmission Date: 20200409
  Serious: No
  Sender: FDA-Public Use
  Company Number: US-PFIZER INC-2020016378

PATIENT
  Age: 62 Year
  Sex: Female
  Weight: 141 kg

DRUGS (2)
  1. PREMARIN [Suspect]
     Active Substance: ESTROGENS, CONJUGATED
     Dosage: 0.625 MG/G, 2X/WEEK (MONDAY AND THURSDAY; BEEN OVER A YEAR OR MORE)
     Dates: start: 201911
  2. PREMARIN [Suspect]
     Active Substance: ESTROGENS, CONJUGATED
     Indication: VULVOVAGINAL DRYNESS
     Dosage: 0.625 MG/G, 2X/WEEK (MONDAY AND THURSDAY; BEEN OVER A YEAR OR MORE)

REACTIONS (2)
  - Loss of personal independence in daily activities [Recovered/Resolved]
  - Expired product administered [Unknown]

NARRATIVE: CASE EVENT DATE: 201911
